FAERS Safety Report 24088030 (Version 1)
Quarter: 2024Q3

REPORT INFORMATION
  Report Type: Spontaneous
  Country: DE (occurrence: DE)
  Receive Date: 20240715
  Receipt Date: 20240715
  Transmission Date: 20241017
  Serious: Yes (Other)
  Sender: AUROBINDO
  Company Number: DE-UCBSA-2024032909

PATIENT
  Age: 33 Year
  Sex: Female

DRUGS (10)
  1. LACOSAMIDE [Interacting]
     Active Substance: LACOSAMIDE
     Indication: Partial seizures with secondary generalisation
     Dosage: 400 MILLIGRAM, DAILY
     Route: 065
  2. LACOSAMIDE [Interacting]
     Active Substance: LACOSAMIDE
     Indication: Post-traumatic epilepsy
     Dosage: UP TO 600 MG/D
     Route: 065
  3. LAMOTRIGINE [Suspect]
     Active Substance: LAMOTRIGINE
     Indication: Post-traumatic epilepsy
     Dosage: 800 MILLIGRAM, DAILY
     Route: 065
  4. LAMOTRIGINE [Suspect]
     Active Substance: LAMOTRIGINE
     Indication: Partial seizures with secondary generalisation
  5. PREGABALIN [Suspect]
     Active Substance: PREGABALIN
     Indication: Partial seizures with secondary generalisation
     Dosage: 450 MILLIGRAM, DAILY
     Route: 065
  6. PREGABALIN [Suspect]
     Active Substance: PREGABALIN
     Indication: Post-traumatic epilepsy
  7. BRIVARACETAM [Interacting]
     Active Substance: BRIVARACETAM
     Indication: Partial seizures with secondary generalisation
     Dosage: 100 MILLIGRAM, DAILY
     Route: 065
  8. BRIVARACETAM [Interacting]
     Active Substance: BRIVARACETAM
     Indication: Post-traumatic epilepsy
     Dosage: 200 MILLIGRAM, DAILY
     Route: 065
  9. RIFAMPIN [Interacting]
     Active Substance: RIFAMPIN
     Indication: Internal fixation of fracture
     Dosage: UNK
     Route: 065
  10. COTRIM [Concomitant]
     Active Substance: SULFAMETHOXAZOLE\TRIMETHOPRIM
     Indication: Internal fixation of fracture
     Dosage: UNK
     Route: 065

REACTIONS (9)
  - Seizure [Unknown]
  - Generalised tonic-clonic seizure [Unknown]
  - Internal fixation of fracture [Unknown]
  - Irritability [Unknown]
  - Impaired driving ability [Recovered/Resolved]
  - Drug level decreased [Unknown]
  - Multiple-drug resistance [Unknown]
  - Drug interaction [Unknown]
  - Off label use [Unknown]

NARRATIVE: CASE EVENT DATE: 20190801
